FAERS Safety Report 24923114 (Version 2)
Quarter: 2025Q2

REPORT INFORMATION
  Report Type: Spontaneous
  Country: US (occurrence: US)
  Receive Date: 20250204
  Receipt Date: 20250421
  Transmission Date: 20250717
  Serious: No
  Sender: ROCHE
  Company Number: US-ROCHE-10000193790

PATIENT
  Sex: Female

DRUGS (13)
  1. XOLAIR [Suspect]
     Active Substance: OMALIZUMAB
     Indication: Asthma
     Route: 058
  2. AMITRIPTYLINE [Concomitant]
     Active Substance: AMITRIPTYLINE
  3. BREZTRI [Concomitant]
     Active Substance: BUDESONIDE\FORMOTEROL\GLYCOPYRROLATE
  4. FUROSEMIDE [Concomitant]
     Active Substance: FUROSEMIDE
  5. LOSARTAN [Concomitant]
     Active Substance: LOSARTAN
  6. POTASSIUM [Concomitant]
     Active Substance: POTASSIUM
  7. AMLODIPINE [Concomitant]
     Active Substance: AMLODIPINE BESYLATE
  8. ATORVASTATIN [Concomitant]
     Active Substance: ATORVASTATIN
  9. AZITHROMYCIN [Concomitant]
     Active Substance: AZITHROMYCIN
  10. EPINEPHRINE [Concomitant]
     Active Substance: EPINEPHRINE
  11. METOPROLOL [Concomitant]
     Active Substance: METOPROLOL
  12. MONTELUKAST [Concomitant]
     Active Substance: MONTELUKAST
  13. PREDNISONE [Concomitant]
     Active Substance: PREDNISONE

REACTIONS (2)
  - Drug ineffective [Unknown]
  - No adverse event [Unknown]
